FAERS Safety Report 6258398-8 (Version None)
Quarter: 2009Q3

REPORT INFORMATION
  Report Type: 
  Country: None (occurrence: None)
  Receive Date: 20090702
  Receipt Date: 20090702
  Transmission Date: 20100115
  Serious: Yes (Hospitalization)
  Sender: FDA-Public Use
  Company Number: None

PATIENT
  Age: 86 Year
  Sex: Female

DRUGS (2)
  1. LEVOFLOXACIN [Suspect]
     Indication: PNEUMONIA
     Dosage: 250 MG DAILY IV BOLUS
     Route: 040
     Dates: start: 20090116, end: 20090117
  2. CEFTRIAXONE 1 GM [Suspect]
     Indication: PNEUMONIA
     Dosage: 1 GM DAILY IV BOLUS
     Route: 040
     Dates: start: 20090114, end: 20090122

REACTIONS (1)
  - DELIRIUM [None]
